FAERS Safety Report 8158907-8 (Version None)
Quarter: 2012Q1

REPORT INFORMATION
  Report Type: 
  Country: None (occurrence: None)
  Receive Date: 20120217
  Receipt Date: 20120208
  Transmission Date: 20120608
  Serious: Yes (Other)
  Sender: FDA-Public Use
  Company Number: 2012MA001943

PATIENT
  Sex: Female

DRUGS (6)
  1. QUININE SULFATE [Suspect]
  2. BACLOFEN [Suspect]
  3. FEVERALL [Suspect]
  4. CALCIUM CARBONATE [Suspect]
  5. OMEPRAZOLE [Suspect]
     Indication: ULCER
     Dosage: QAM
  6. LEVETIRACETAM [Suspect]

REACTIONS (1)
  - DEPRESSION [None]
